FAERS Safety Report 7303069-X (Version None)
Quarter: 2011Q1

REPORT INFORMATION
  Report Type: 
  Country: None (occurrence: None)
  Receive Date: 20110221
  Receipt Date: 20110211
  Transmission Date: 20110831
  Serious: Yes (Hospitalization)
  Sender: FDA-Public Use
  Company Number: US-BIOGENIDEC-2011BI005494

PATIENT
  Age: 42 Year
  Sex: Female

DRUGS (2)
  1. PREDNISONE [Concomitant]
     Route: 048
  2. AVONEX [Suspect]
     Indication: MULTIPLE SCLEROSIS
     Route: 030
     Dates: start: 20100720

REACTIONS (2)
  - SEPSIS [None]
  - RENAL FAILURE [None]
